FAERS Safety Report 8795598 (Version 1)
Quarter: 2012Q4

REPORT INFORMATION
  Report Type: 
  Country: KR (occurrence: KR)
  Receive Date: 20120919
  Receipt Date: 20120919
  Transmission Date: 20130627
  Serious: No
  Sender: FDA-Public Use
  Company Number: KR-JNJFOC-20120907445

PATIENT
  Sex: Male

DRUGS (3)
  1. ULTRACET [Suspect]
     Indication: PRODUCT USED FOR UNKNOWN INDICATION
     Route: 048
  2. DUROGESIC D-TRANS [Suspect]
     Indication: PAIN MANAGEMENT
     Route: 062
     Dates: start: 20120914
  3. DUROGESIC D-TRANS [Suspect]
     Indication: PAIN MANAGEMENT
     Route: 062
     Dates: start: 20120912

REACTIONS (5)
  - Hyperhidrosis [Not Recovered/Not Resolved]
  - Somnolence [Not Recovered/Not Resolved]
  - Dizziness [Not Recovered/Not Resolved]
  - Treatment noncompliance [Unknown]
  - Cold sweat [None]
